FAERS Safety Report 20309295 (Version 1)
Quarter: 2022Q1

REPORT INFORMATION
  Report Type: Spontaneous
  Country: US (occurrence: None)
  Receive Date: 20220107
  Receipt Date: 20220107
  Transmission Date: 20220424
  Serious: No
  Sender: FDA-Public Use
  Company Number: 2021A867829

PATIENT
  Age: 15676 Day
  Sex: Female
  Weight: 78.5 kg

DRUGS (3)
  1. SYMBICORT [Suspect]
     Active Substance: BUDESONIDE\FORMOTEROL FUMARATE DIHYDRATE
     Indication: Asthma
     Dosage: 160/4.5??G/D UNKNOWN
     Route: 055
  2. FLONASE [Concomitant]
     Active Substance: FLUTICASONE PROPIONATE
  3. ALBUTEROL [Concomitant]
     Active Substance: ALBUTEROL

REACTIONS (5)
  - Choking sensation [Unknown]
  - Foreign body in throat [Unknown]
  - Cough [Unknown]
  - Dysphonia [Unknown]
  - Device defective [Unknown]

NARRATIVE: CASE EVENT DATE: 20211209
